FAERS Safety Report 9820491 (Version 4)
Quarter: 2014Q1

REPORT INFORMATION
  Report Type: Report from Study
  Country: US (occurrence: US)
  Receive Date: 20140116
  Receipt Date: 20140221
  Transmission Date: 20141002
  Serious: Yes (Hospitalization)
  Sender: FDA-Public Use
  Company Number: US-SA-2013SA127406

PATIENT
  Age: 75 Year
  Sex: Female
  Weight: 148 kg

DRUGS (7)
  1. AUBAGIO [Suspect]
     Indication: MULTIPLE SCLEROSIS
     Route: 048
     Dates: start: 2009
  2. ADVIL PM [Concomitant]
     Indication: INSOMNIA
  3. VALIUM [Concomitant]
     Indication: NERVOUSNESS
  4. TRAZODONE [Concomitant]
     Indication: RESTLESS LEGS SYNDROME
  5. POTASSIUM CITRATE [Concomitant]
     Indication: HYPERTENSION
  6. IMODIUM [Concomitant]
     Indication: HYPERTENSION
  7. LEVOTHYROXINE [Concomitant]

REACTIONS (10)
  - Nocturia [Unknown]
  - Alopecia [Not Recovered/Not Resolved]
  - Nasal congestion [Unknown]
  - Flushing [Unknown]
  - Depression [Unknown]
  - Fall [Not Recovered/Not Resolved]
  - Asthenia [Unknown]
  - Pain in extremity [Unknown]
  - Multiple sclerosis relapse [Not Recovered/Not Resolved]
  - Drug ineffective [Unknown]
